FAERS Safety Report 13275011 (Version 3)
Quarter: 2017Q2

REPORT INFORMATION
  Report Type: Spontaneous
  Country: US (occurrence: US)
  Receive Date: 20170227
  Receipt Date: 20170613
  Transmission Date: 20170830
  Serious: Yes (Death, Life-Threatening, Hospitalization)
  Sender: FDA-Public Use
  Company Number: US-VIFOR (INTERNATIONAL) INC.-VIT-2017-01960

PATIENT
  Age: 78 Year
  Sex: Male

DRUGS (17)
  1. FERROUS SULFATE. [Concomitant]
     Active Substance: FERROUS SULFATE
  2. NITROGLYCERIN. [Concomitant]
     Active Substance: NITROGLYCERIN
  3. GLIMEPIRIDE. [Concomitant]
     Active Substance: GLIMEPIRIDE
  4. ACETYLSALICYLIC ACID [Concomitant]
     Active Substance: ASPIRIN
  5. VELTASSA [Suspect]
     Active Substance: PATIROMER
     Indication: HYPERKALAEMIA
     Route: 048
     Dates: start: 20160914, end: 201702
  6. TAMSULOSIN HYDROCHLORIDE. [Concomitant]
     Active Substance: TAMSULOSIN HYDROCHLORIDE
  7. SODIUM BICARBONATE. [Concomitant]
     Active Substance: SODIUM BICARBONATE
  8. RAMIPRIL. [Concomitant]
     Active Substance: RAMIPRIL
  9. PLAVIX [Concomitant]
     Active Substance: CLOPIDOGREL BISULFATE
  10. JANUVIA [Concomitant]
     Active Substance: SITAGLIPTIN PHOSPHATE
  11. LOSARTAN POTASSIUM. [Concomitant]
     Active Substance: LOSARTAN POTASSIUM
  12. CARVEDILOL. [Concomitant]
     Active Substance: CARVEDILOL
  13. TOUJEO [Concomitant]
     Active Substance: INSULIN GLARGINE
  14. PREDNISONE. [Concomitant]
     Active Substance: PREDNISONE
  15. OMEPRAZOLE. [Concomitant]
     Active Substance: OMEPRAZOLE
  16. FUROSEMIDE. [Concomitant]
     Active Substance: FUROSEMIDE
  17. ATORVASTATIN CALCIUM. [Concomitant]
     Active Substance: ATORVASTATIN CALCIUM

REACTIONS (5)
  - Renal failure [Fatal]
  - Critical illness [Unknown]
  - Myocardial infarction [Unknown]
  - Dyspnoea [Unknown]
  - Cardiac failure [Fatal]

NARRATIVE: CASE EVENT DATE: 20170220
